FAERS Safety Report 7391349-1 (Version None)
Quarter: 2011Q2

REPORT INFORMATION
  Report Type: 
  Country: None (occurrence: None)
  Receive Date: 20110404
  Receipt Date: 20110328
  Transmission Date: 20111010
  Serious: Yes (Other)
  Sender: FDA-Public Use
  Company Number: FR-BRISTOL-MYERS SQUIBB COMPANY-15644099

PATIENT
  Age: 60 Year
  Sex: Male

DRUGS (5)
  1. AMANTADINE HCL [Suspect]
  2. REQUIP [Suspect]
  3. STALEVO 100 [Suspect]
  4. MODOPAR [Suspect]
  5. METFORMIN HCL [Suspect]

REACTIONS (2)
  - HYPOTONIA [None]
  - SUDDEN ONSET OF SLEEP [None]
